FAERS Safety Report 6438487-5 (Version None)
Quarter: 2009Q4

REPORT INFORMATION
  Report Type: 
  Country: None (occurrence: None)
  Receive Date: 20091110
  Receipt Date: 20091030
  Transmission Date: 20100525
  Serious: Yes (Hospitalization)
  Sender: FDA-Public Use
  Company Number: WAES 0910USA04235

PATIENT
  Age: 48 Year
  Sex: Male

DRUGS (4)
  1. DECADRON [Suspect]
     Indication: NON-HODGKIN'S LYMPHOMA
     Dosage: PO
     Route: 048
     Dates: start: 20090730, end: 20090910
  2. GEMZAR [Suspect]
     Indication: NON-HODGKIN'S LYMPHOMA
     Dosage: IV
     Route: 042
     Dates: start: 20090730, end: 20090910
  3. CISPLATIN [Suspect]
     Indication: NON-HODGKIN'S LYMPHOMA
     Dosage: IV
     Route: 042
     Dates: start: 20090730, end: 20090910
  4. RITUXIMAB UNK [Suspect]
     Indication: NON-HODGKIN'S LYMPHOMA
     Dosage: IV
     Route: 042
     Dates: start: 20090730, end: 20090910

REACTIONS (6)
  - AORTITIS [None]
  - HAEMATOPOIETIC STEM CELL MOBILISATION [None]
  - HEADACHE [None]
  - PYREXIA [None]
  - ROAD TRAFFIC ACCIDENT [None]
  - VASCULITIS [None]
